FAERS Safety Report 8809146 (Version 1)
Quarter: 2012Q4

REPORT INFORMATION
  Report Type: 
  Country: US (occurrence: US)
  Receive Date: 20120926
  Receipt Date: 20120926
  Transmission Date: 20130627
  Serious: No
  Sender: FDA-Public Use
  Company Number: US-B.I. PHARMACEUTICALS,INC./RIDGEFIELD-2012-BP-23234BP

PATIENT
  Age: 73 Year
  Sex: Female
  Weight: 65 kg

DRUGS (27)
  1. SPIRIVA [Suspect]
     Indication: CHRONIC OBSTRUCTIVE PULMONARY DISEASE
     Dosage: 18 mcg
     Route: 055
     Dates: start: 2009
  2. SPIRIVA [Suspect]
     Dosage: 18 mcg
     Route: 048
     Dates: start: 20120921, end: 20120921
  3. BROVANA [Concomitant]
     Indication: CHRONIC OBSTRUCTIVE PULMONARY DISEASE
     Dosage: 30 mg
     Route: 055
     Dates: start: 2007
  4. POLYETHYLENE GLYCOL [Concomitant]
     Indication: FAECES HARD
     Route: 048
     Dates: start: 2009
  5. SINGULAIR [Concomitant]
     Indication: HYPERSENSITIVITY
     Dosage: 10 mg
     Route: 048
     Dates: start: 2009
  6. TORSEMIDE [Concomitant]
     Indication: OEDEMA
     Dosage: 20 mg
     Route: 048
     Dates: start: 2007
  7. ASTELIN [Concomitant]
     Indication: SINUS DISORDER
     Route: 045
     Dates: start: 2009
  8. BUDESONIDE [Concomitant]
     Indication: CHRONIC OBSTRUCTIVE PULMONARY DISEASE
     Dosage: 1 mg
     Route: 055
     Dates: start: 2007
  9. HYDRALAZINE [Concomitant]
     Indication: HYPERTENSION
     Dosage: 300 mg
     Route: 048
     Dates: start: 2005
  10. LEXAPRO [Concomitant]
     Indication: ANXIETY
     Dosage: 10 mg
     Route: 048
     Dates: start: 2009
  11. ASPIRIN [Concomitant]
     Route: 048
     Dates: start: 2009
  12. PROCRIT [Concomitant]
     Indication: RENAL IMPAIRMENT
     Route: 030
     Dates: start: 2008
  13. COLCRYS [Concomitant]
     Indication: GOUT
     Dosage: 0.12 mg
     Route: 048
     Dates: start: 2010
  14. FLUTICASON [Concomitant]
     Indication: SINUS DISORDER
     Route: 045
     Dates: start: 2009
  15. VENTOLIN [Concomitant]
     Indication: CHRONIC OBSTRUCTIVE PULMONARY DISEASE
     Route: 055
     Dates: start: 2007
  16. FLOVENT [Concomitant]
     Indication: CHRONIC OBSTRUCTIVE PULMONARY DISEASE
     Route: 055
     Dates: start: 2009
  17. CLONIDINE [Concomitant]
     Indication: HYPERTENSION
     Dosage: 0.03 mg
     Route: 048
     Dates: start: 201109
  18. POTASSIUM [Concomitant]
     Indication: SUPPLEMENTATION THERAPY
     Dosage: 10 mg
     Route: 048
     Dates: start: 2007
  19. SIMVASTATIN [Concomitant]
     Indication: BLOOD CHOLESTEROL INCREASED
     Dosage: 20 mg
     Route: 048
     Dates: start: 2010
  20. CALCIUM PLUS D [Concomitant]
     Indication: SUPPLEMENTATION THERAPY
     Dosage: 600 mg
     Route: 048
     Dates: start: 2007
  21. COLACE [Concomitant]
     Indication: FAECES HARD
     Route: 048
     Dates: start: 2009
  22. OMEPRAZOLE [Concomitant]
     Indication: GASTRIC DISORDER
     Dosage: 40 mg
     Route: 048
     Dates: start: 2009
  23. VITAMIN D [Concomitant]
     Indication: SUPPLEMENTATION THERAPY
     Route: 058
     Dates: start: 2011
  24. ALBUTEROL [Concomitant]
     Indication: CHRONIC OBSTRUCTIVE PULMONARY DISEASE
     Route: 055
     Dates: start: 2007
  25. NITROGLYCERINE [Concomitant]
     Indication: CHEST PAIN
     Dates: start: 2008
  26. TYLENOL [Concomitant]
     Indication: PAIN
     Route: 048
  27. MUCINEX EXPECTORANT [Concomitant]
     Indication: RHINORRHOEA
     Route: 048

REACTIONS (1)
  - Incorrect route of drug administration [Recovered/Resolved]
